FAERS Safety Report 5239780-4 (Version None)
Quarter: 2007Q1

REPORT INFORMATION
  Report Type: 
  Country: None (occurrence: None)
  Receive Date: 20070216
  Receipt Date: 20070206
  Transmission Date: 20070707
  Serious: Yes (Death)
  Sender: FDA-Public Use
  Company Number: FR-ROCHE-474838

PATIENT
  Sex: Female

DRUGS (6)
  1. COPEGUS [Suspect]
     Indication: HEPATITIS C
     Route: 065
  2. PEGASYS [Suspect]
     Indication: HEPATITIS C
     Route: 065
  3. BENZODIAZEPINE NOS [Concomitant]
     Dosage: REPORTED AS BENZODIAZEPINE COMPOUND.
  4. NEUROLEPTIC [Concomitant]
  5. INTERFERON NOS [Concomitant]
  6. METHADON [Concomitant]

REACTIONS (1)
  - COMA [None]
